FAERS Safety Report 16902925 (Version 1)
Quarter: 2019Q4

REPORT INFORMATION
  Report Type: Spontaneous
  Country: CZ (occurrence: CZ)
  Receive Date: 20191010
  Receipt Date: 20191010
  Transmission Date: 20200122
  Serious: Yes (Death)
  Sender: FDA-Public Use
  Company Number: CZ-ROCHE-2425706

PATIENT
  Age: 67 Year
  Sex: Male

DRUGS (6)
  1. RILMENIDINE [Concomitant]
     Active Substance: RILMENIDINE
     Route: 065
  2. LUSOPRESS [Concomitant]
     Active Substance: NITRENDIPINE
     Route: 065
  3. LORISTA [Concomitant]
     Active Substance: LOSARTAN POTASSIUM
     Route: 065
  4. TELMISARTAN. [Concomitant]
     Active Substance: TELMISARTAN
     Route: 065
  5. ALECENSA [Suspect]
     Active Substance: ALECTINIB HYDROCHLORIDE
     Indication: LUNG NEOPLASM MALIGNANT
     Route: 065
     Dates: start: 20190326
  6. SIOFOR [Concomitant]
     Active Substance: METFORMIN HYDROCHLORIDE
     Route: 065

REACTIONS (1)
  - Cardiopulmonary failure [Fatal]

NARRATIVE: CASE EVENT DATE: 20190909
